FAERS Safety Report 19203285 (Version 1)
Quarter: 2021Q2

REPORT INFORMATION
  Report Type: Spontaneous
  Country: ES (occurrence: ES)
  Receive Date: 20210430
  Receipt Date: 20210430
  Transmission Date: 20210717
  Serious: Yes (Death, Other)
  Sender: FDA-Public Use
  Company Number: ES-AMGEN-ESPSP2021066110

PATIENT

DRUGS (2)
  1. FILGRASTIM [Suspect]
     Active Substance: FILGRASTIM
     Indication: PROPHYLAXIS
     Dosage: UNK
     Route: 065
  2. BLINATUMOMAB [Suspect]
     Active Substance: BLINATUMOMAB
     Indication: ACUTE LYMPHOCYTIC LEUKAEMIA
     Dosage: UNK
     Route: 065

REACTIONS (22)
  - Gastrointestinal toxicity [Fatal]
  - Neurotoxicity [Unknown]
  - Nephropathy toxic [Unknown]
  - Infection [Fatal]
  - Angiopathy [Unknown]
  - Mental disorder [Unknown]
  - Hypersensitivity [Unknown]
  - Minimal residual disease [Unknown]
  - Acute lymphocytic leukaemia recurrent [Fatal]
  - Thrombocytopenia [Unknown]
  - Metabolic disorder [Unknown]
  - Hepatotoxicity [Unknown]
  - Musculoskeletal toxicity [Unknown]
  - Neoplasm [Fatal]
  - Death [Fatal]
  - Neutropenia [Unknown]
  - Coagulopathy [Unknown]
  - Endocrine toxicity [Unknown]
  - Mucosal inflammation [Unknown]
  - Drug resistance [Unknown]
  - Toxicity to various agents [Fatal]
  - Disease progression [Fatal]
